FAERS Safety Report 7015507-0 (Version None)
Quarter: 2010Q3

REPORT INFORMATION
  Report Type: 
  Country: None (occurrence: None)
  Receive Date: 20100927
  Receipt Date: 20100920
  Transmission Date: 20110219
  Serious: Yes (Death)
  Sender: FDA-Public Use
  Company Number: SK-ELI_LILLY_AND_COMPANY-SK201009004437

PATIENT
  Age: 23 Year
  Sex: Female

DRUGS (18)
  1. FORTEO [Suspect]
     Indication: OSTEOPOROSIS
  2. ALPRAZOLAM [Concomitant]
     Dosage: UNK, UNKNOWN
     Route: 065
  3. RIVOTRIL [Concomitant]
     Dosage: UNK, UNKNOWN
     Route: 065
  4. BETALOC [Concomitant]
     Dosage: UNK, UNKNOWN
     Route: 065
  5. PREDNISONE [Concomitant]
     Dosage: UNK, UNKNOWN
     Route: 065
  6. CYCLOSPORINE [Concomitant]
     Dosage: UNK, UNKNOWN
     Route: 065
  7. MYCOPHENOLATE MOFETIL [Concomitant]
     Dosage: UNK, UNKNOWN
     Route: 065
  8. ALBENDAZOLE [Concomitant]
     Dosage: UNK, UNKNOWN
     Route: 065
  9. ACETYLSALICYLIC ACID [Concomitant]
     Dosage: UNK, UNKNOWN
     Route: 065
  10. FLUCONAZOLE [Concomitant]
     Dosage: UNK, UNKNOWN
     Route: 065
  11. ACIKLOVIR GEA /00587301/ [Concomitant]
     Dosage: UNK, UNKNOWN
     Route: 065
  12. ENALAPRIL [Concomitant]
     Dosage: UNK, UNKNOWN
     Route: 065
  13. AMLODIPINE [Concomitant]
     Dosage: UNK, UNKNOWN
     Route: 065
  14. FUROSEMIDE [Concomitant]
     Dosage: UNK, UNKNOWN
     Route: 065
  15. FLUVASTATIN [Concomitant]
     Dosage: UNK, UNKNOWN
     Route: 065
  16. FLAVOBION [Concomitant]
     Dosage: UNK, UNKNOWN
     Route: 065
  17. MAGNE-B6 [Concomitant]
     Dosage: UNK, UNKNOWN
     Route: 065
  18. ACIDUM FOLICUM [Concomitant]
     Dosage: UNK, UNKNOWN
     Route: 065

REACTIONS (1)
  - DEATH [None]
